FAERS Safety Report 5219740-X (Version None)
Quarter: 2006Q4

REPORT INFORMATION
  Report Type: 
  Country: None (occurrence: None)
  Receive Date: 20061201
  Receipt Date: 20060717
  Transmission Date: 20070319
  Serious: No
  Sender: FDA-Public Use
  Company Number: 2006PV017764

PATIENT
  Age: 73 Year
  Sex: Female

DRUGS (6)
  1. BYETTA [Suspect]
     Indication: DIABETES MELLITUS NON-INSULIN-DEPENDENT
     Dosage: 5 MCG;BID;SC
     Route: 058
     Dates: start: 20060714
  2. GLIPIZIDE [Concomitant]
  3. ACTOS /USA/ [Concomitant]
  4. ADVAIR DISKUS 100/50 [Concomitant]
  5. SPIRIVA ^PFIZER^ [Concomitant]
  6. PREDNISONE TAB [Concomitant]

REACTIONS (3)
  - BLOOD GLUCOSE DECREASED [None]
  - HEADACHE [None]
  - MEDICATION ERROR [None]
